FAERS Safety Report 7745292-6 (Version None)
Quarter: 2011Q3

REPORT INFORMATION
  Report Type: 
  Country: None (occurrence: None)
  Receive Date: 20110819
  Receipt Date: 20110620
  Transmission Date: 20111222
  Serious: Yes (Other)
  Sender: FDA-Public Use
  Company Number: 033492

PATIENT
  Sex: Female

DRUGS (3)
  1. LACOSAMIDE [Suspect]
     Dosage: 200 MG BID
     Dates: start: 20110501
  2. CARBAMAZEPINE [Concomitant]
  3. LEXAPRO [Concomitant]

REACTIONS (8)
  - RASH [None]
  - HEADACHE [None]
  - DEPRESSION [None]
  - VISION BLURRED [None]
  - DIZZINESS [None]
  - SUICIDAL IDEATION [None]
  - DYSPNOEA [None]
  - DIPLOPIA [None]
